FAERS Safety Report 7954156-4 (Version None)
Quarter: 2011Q4

REPORT INFORMATION
  Report Type: 
  Country: None (occurrence: None)
  Receive Date: 20111202
  Receipt Date: 20111123
  Transmission Date: 20120403
  Serious: Yes (Hospitalization, Other)
  Sender: FDA-Public Use
  Company Number: AT-AMGEN-AUTSP2011062201

PATIENT
  Age: 71 Year
  Sex: Female

DRUGS (13)
  1. PANTOLOC                           /01263204/ [Concomitant]
     Dosage: 40 MG, UNK
  2. CANDESARTAN CILEXETIL/HYDROCHLOROTHIAZIDE [Concomitant]
     Dosage: 16 MG, UNK
  3. BISOPROLOL FUMARATE [Concomitant]
     Dosage: 2.5 MG, UNK
  4. ASPIRIN [Concomitant]
     Dosage: 100 MG, UNK
  5. EBASTINE [Concomitant]
  6. HALCION [Concomitant]
  7. SIMVASTATIN [Concomitant]
     Dosage: 40 MG, UNK
  8. ADAMON                             /00599202/ [Concomitant]
     Dosage: 150 MG, UNK
  9. URBASON                            /00049601/ [Concomitant]
     Dosage: 60 MG, QD
     Dates: end: 20111117
  10. PROLIA [Suspect]
     Indication: PRODUCT USED FOR UNKNOWN INDICATION
     Dosage: UNK
     Dates: start: 20111018
  11. CORTISONE ACETATE [Concomitant]
     Indication: RENAL FAILURE CHRONIC
     Dosage: UNK
  12. SUCRALFATE [Concomitant]
  13. DIAMICRON [Concomitant]
     Dosage: 30 MG, UNK

REACTIONS (11)
  - PYREXIA [None]
  - RENAL FAILURE [None]
  - DIABETIC NEPHROPATHY [None]
  - OEDEMA [None]
  - GENERAL PHYSICAL HEALTH DETERIORATION [None]
  - DIABETES MELLITUS [None]
  - FATIGUE [None]
  - ECZEMA [None]
  - HYPERTENSION [None]
  - DYSPNOEA EXERTIONAL [None]
  - DRUG ERUPTION [None]
